FAERS Safety Report 5398990-6 (Version None)
Quarter: 2007Q3

REPORT INFORMATION
  Report Type: 
  Country: None (occurrence: None)
  Receive Date: 20070727
  Receipt Date: 20070627
  Transmission Date: 20080115
  Serious: Yes (Disabling, Other)
  Sender: FDA-Public Use
  Company Number: US-BAYER-200613520BCC

PATIENT
  Age: 73 Year
  Sex: Male
  Weight: 82 kg

DRUGS (4)
  1. ALEVE [Suspect]
     Indication: ANALGESIA
     Dosage: TOTAL DAILY DOSE: 220 MG  UNIT DOSE: 220 MG
     Route: 048
     Dates: start: 20050601
  2. PROCARDIA [Concomitant]
  3. CLARITIN [Concomitant]
  4. TERAZOSIN HCL [Concomitant]

REACTIONS (5)
  - EYE DISORDER [None]
  - EYE SWELLING [None]
  - OPTIC ISCHAEMIC NEUROPATHY [None]
  - OPTIC NERVE SHEATH HAEMORRHAGE [None]
  - VISUAL ACUITY REDUCED [None]
